FAERS Safety Report 5098873-5 (Version None)
Quarter: 2006Q3

REPORT INFORMATION
  Report Type: 
  Country: None (occurrence: None)
  Receive Date: 20060905
  Receipt Date: 20060825
  Transmission Date: 20061208
  Serious: Yes (Other)
  Sender: FDA-Public Use
  Company Number: 2006103918

PATIENT
  Age: 17 Year
  Sex: Female

DRUGS (1)
  1. DRAMAMINE [Suspect]
     Dosage: UNSPECIFIED; ORAL
     Route: 048
     Dates: start: 20060825, end: 20060825

REACTIONS (1)
  - EUPHORIC MOOD [None]
